FAERS Safety Report 7110308-7 (Version None)
Quarter: 2010Q4

REPORT INFORMATION
  Report Type: 
  Country: None (occurrence: None)
  Receive Date: 20101118
  Receipt Date: 20100723
  Transmission Date: 20110411
  Serious: No
  Sender: FDA-Public Use
  Company Number: A0872101A

PATIENT
  Sex: Female

DRUGS (2)
  1. COREG CR [Suspect]
     Dosage: 10MG PER DAY
     Route: 048
  2. DIURETIC [Concomitant]

REACTIONS (3)
  - COUGH [None]
  - DIZZINESS [None]
  - DYSPNOEA [None]
